FAERS Safety Report 8473144-5 (Version None)
Quarter: 2012Q2

REPORT INFORMATION
  Report Type: 
  Country: None (occurrence: None)
  Receive Date: 20120627
  Receipt Date: 20120625
  Transmission Date: 20120825
  Serious: Yes (Other)
  Sender: FDA-Public Use
  Company Number: CH-PFIZER INC-2012151592

PATIENT
  Age: 39 Year
  Sex: Female
  Weight: 70 kg

DRUGS (1)
  1. EFFEXOR XR [Suspect]
     Dosage: 75 MG DAILY
     Route: 048
     Dates: start: 20080321

REACTIONS (2)
  - PREMATURE LABOUR [None]
  - HAEMORRHAGE IN PREGNANCY [None]
